FAERS Safety Report 7607233-1 (Version None)
Quarter: 2011Q3

REPORT INFORMATION
  Report Type: 
  Country: None (occurrence: None)
  Receive Date: 20110712
  Receipt Date: 20110712
  Transmission Date: 20111222
  Serious: Yes (Hospitalization)
  Sender: FDA-Public Use
  Company Number: None

PATIENT
  Age: 64 Year
  Sex: Male
  Weight: 128.6 kg

DRUGS (1)
  1. CISPLATIN [Suspect]
     Dosage: 129 MG OTHER IV
     Route: 042
     Dates: start: 20110516, end: 20110517

REACTIONS (2)
  - RENAL FAILURE ACUTE [None]
  - HYPOTENSION [None]
